FAERS Safety Report 7050863-9 (Version None)
Quarter: 2010Q4

REPORT INFORMATION
  Report Type: 
  Country: None (occurrence: None)
  Receive Date: 20101019
  Receipt Date: 20101011
  Transmission Date: 20110411
  Serious: No
  Sender: FDA-Public Use
  Company Number: US-BIOGENIDEC-2010BI035704

PATIENT
  Age: 54 Year
  Sex: Female

DRUGS (2)
  1. TYSABRI [Suspect]
     Indication: MULTIPLE SCLEROSIS
     Route: 042
     Dates: start: 20100701
  2. ANTIHISTAMINE (NOS) [Concomitant]
     Indication: PREMEDICATION

REACTIONS (3)
  - POST INFLAMMATORY PIGMENTATION CHANGE [None]
  - URTICARIA [None]
  - WHITE BLOOD CELL COUNT INCREASED [None]
